FAERS Safety Report 9719048 (Version 1)
Quarter: 2013Q4

REPORT INFORMATION
  Report Type: Report from Study
  Country: GB (occurrence: GB)
  Receive Date: 20131127
  Receipt Date: 20131127
  Transmission Date: 20140711
  Serious: Yes (Death)
  Sender: FDA-Public Use
  Company Number: GB-BAXTER-2013BAX047851

PATIENT
  Sex: 0

DRUGS (6)
  1. CYCLOPHOSPHAMIDE TABLETS 50 MG [Suspect]
     Indication: ANTI-NEUTROPHIL CYTOPLASMIC ANTIBODY POSITIVE VASCULITIS
     Route: 048
  2. CYCLOPHOSPHAMIDE TABLETS 50 MG [Suspect]
     Route: 048
  3. AZATHIOPRINE [Suspect]
     Indication: PROPHYLACTIC CHEMOTHERAPY
     Route: 048
  4. PREDNISOLONE [Suspect]
     Indication: PRODUCT USED FOR UNKNOWN INDICATION
     Route: 048
  5. PREDNISOLONE [Suspect]
     Route: 065
  6. PREDNISOLONE [Suspect]
     Route: 065

REACTIONS (1)
  - Disease progression [Fatal]
